FAERS Safety Report 7523386-8 (Version None)
Quarter: 2011Q2

REPORT INFORMATION
  Report Type: 
  Country: None (occurrence: None)
  Receive Date: 20110603
  Receipt Date: 20110527
  Transmission Date: 20111010
  Serious: Yes (Hospitalization)
  Sender: FDA-Public Use
  Company Number: B0722670A

PATIENT
  Age: 59 Year
  Sex: Female

DRUGS (1)
  1. AVANDIA [Suspect]
     Dosage: 4MG TWICE PER DAY
     Route: 048
     Dates: start: 20060308, end: 20070327

REACTIONS (6)
  - LOSS OF CONSCIOUSNESS [None]
  - HYPERTENSION [None]
  - CORONARY ARTERY DISEASE [None]
  - FLUSHING [None]
  - MYOCARDIAL INFARCTION [None]
  - HEADACHE [None]
